FAERS Safety Report 9668760 (Version 3)
Quarter: 2014Q1

REPORT INFORMATION
  Report Type: Spontaneous
  Country: US (occurrence: US)
  Receive Date: 20131105
  Receipt Date: 20140314
  Transmission Date: 20141002
  Serious: Yes (Hospitalization)
  Sender: FDA-Public Use
  Company Number: US-BAYER-2013-130761

PATIENT
  Age: 30 Year
  Sex: Female
  Weight: 155 kg

DRUGS (1)
  1. MIRENA [Suspect]
     Indication: CONTRACEPTION
     Dosage: 20 MCG/24HR, CONT
     Route: 015
     Dates: start: 20070328, end: 20100924

REACTIONS (13)
  - Uterine perforation [None]
  - Vaginal discharge [None]
  - Abdominal pain lower [None]
  - Device dislocation [None]
  - Pregnancy with contraceptive device [Recovered/Resolved]
  - Drug ineffective [None]
  - Nausea [None]
  - Decreased appetite [None]
  - Depression [None]
  - Abdominal pain upper [None]
  - Emotional distress [None]
  - Pain [None]
  - Injury [None]
